FAERS Safety Report 5647011-6 (Version None)
Quarter: 2008Q1

REPORT INFORMATION
  Report Type: 
  Country: None (occurrence: None)
  Receive Date: 20080303
  Receipt Date: 20080220
  Transmission Date: 20080703
  Serious: Yes (Other)
  Sender: FDA-Public Use
  Company Number: B0509931A

PATIENT
  Age: 69 Year
  Sex: Female

DRUGS (7)
  1. AVANDIA [Suspect]
     Route: 048
     Dates: start: 20060901, end: 20071016
  2. METFORMIN HCL [Concomitant]
     Route: 048
     Dates: start: 20070401
  3. TRIATEC [Concomitant]
     Indication: HYPERTENSION
     Route: 048
     Dates: start: 20070401
  4. INDAPAMIDE [Concomitant]
     Indication: HYPERTENSION
     Route: 048
     Dates: start: 20070401
  5. KARDEGIC [Concomitant]
     Route: 048
     Dates: start: 20070401
  6. CRESTOR [Concomitant]
     Route: 048
     Dates: start: 20070401
  7. NEURONTIN [Concomitant]
     Route: 048
     Dates: start: 20070401, end: 20071101

REACTIONS (2)
  - ANAEMIA [None]
  - MYELODYSPLASTIC SYNDROME [None]
